FAERS Safety Report 21451067 (Version 2)
Quarter: 2022Q4

REPORT INFORMATION
  Report Type: Spontaneous
  Country: KR (occurrence: KR)
  Receive Date: 20221013
  Receipt Date: 20221014
  Transmission Date: 20230113
  Serious: Yes (Hospitalization, Other)
  Sender: FDA-Public Use
  Company Number: KR-BRISTOL-MYERS SQUIBB COMPANY-2022-117591

PATIENT
  Age: 67 Year
  Sex: Female

DRUGS (10)
  1. TRIAMCINOLONE ACETONIDE [Suspect]
     Active Substance: TRIAMCINOLONE ACETONIDE
     Indication: Nerve block
     Dosage: DAY 1
     Route: 008
  2. TRIAMCINOLONE ACETONIDE [Suspect]
     Active Substance: TRIAMCINOLONE ACETONIDE
     Indication: Rheumatoid arthritis
     Dosage: DAY 4
     Route: 008
  3. TRIAMCINOLONE ACETONIDE [Suspect]
     Active Substance: TRIAMCINOLONE ACETONIDE
     Dosage: DAY 7
     Route: 008
  4. TRIAMCINOLONE ACETONIDE [Suspect]
     Active Substance: TRIAMCINOLONE ACETONIDE
     Dosage: CAUDAL EPIDURAL INJECTION WITH 20MG TRIAMCINOLONE VIA A BLIND TECHNIQUE??ONE WEEK AFTER DISCHARGE
     Route: 008
  5. SODIUM CHLORIDE [Concomitant]
     Active Substance: SODIUM CHLORIDE
     Indication: Nerve block
     Route: 065
  6. SODIUM CHLORIDE [Concomitant]
     Active Substance: SODIUM CHLORIDE
     Indication: Adhesiolysis
     Route: 008
  7. SODIUM CHLORIDE [Concomitant]
     Active Substance: SODIUM CHLORIDE
     Dosage: FOR ADHESIOLYSIS
     Route: 065
  8. BETADINE (povidone-iodine) [Concomitant]
     Indication: Infection prophylaxis
     Route: 065
  9. LIDOCAINE [Concomitant]
     Active Substance: LIDOCAINE
     Indication: Nerve block
     Route: 008
  10. BUPIVACAINE [Concomitant]
     Active Substance: BUPIVACAINE
     Indication: Nerve block
     Route: 008

REACTIONS (4)
  - Enterococcal infection [Recovering/Resolving]
  - Subcutaneous abscess [Recovering/Resolving]
  - Extradural abscess [Recovering/Resolving]
  - Off label use [Unknown]
